FAERS Safety Report 6826362-3 (Version None)
Quarter: 2010Q3

REPORT INFORMATION
  Report Type: 
  Country: None (occurrence: None)
  Receive Date: 20100709
  Receipt Date: 20100705
  Transmission Date: 20110219
  Serious: Yes (Hospitalization, Other)
  Sender: FDA-Public Use
  Company Number: FR-BRISTOL-MYERS SQUIBB COMPANY-15180482

PATIENT
  Age: 89 Year
  Sex: Female

DRUGS (3)
  1. APROVEL TABS 300 MG [Suspect]
     Route: 048
     Dates: end: 20100308
  2. ALDALIX [Interacting]
     Dosage: 1 DOSAGE FORM=50 MG/20 MG 1 CAPSULE
     Route: 048
     Dates: end: 20100308
  3. CORDARONE [Concomitant]
     Dosage: 1 DOSAGE FORM= 200 MG 1 SCORED TABLET
     Route: 048

REACTIONS (8)
  - ARRHYTHMIA [None]
  - DEHYDRATION [None]
  - DIARRHOEA [None]
  - DRUG INTERACTION [None]
  - ERYSIPELAS [None]
  - METABOLIC ACIDOSIS [None]
  - RENAL FAILURE ACUTE [None]
  - VOMITING [None]
